FAERS Safety Report 21177655 (Version 4)
Quarter: 2025Q2

REPORT INFORMATION
  Report Type: Report from Study
  Country: CA (occurrence: CA)
  Receive Date: 20220805
  Receipt Date: 20250604
  Transmission Date: 20250716
  Serious: Yes (Other)
  Sender: OTSUKA
  Company Number: CA-OTSUKA-2021_044566

PATIENT
  Age: 22 Year
  Sex: Male

DRUGS (8)
  1. ARIPIPRAZOLE [Suspect]
     Active Substance: ARIPIPRAZOLE
     Indication: Product used for unknown indication
     Route: 030
     Dates: start: 20211201
  2. ARIPIPRAZOLE [Suspect]
     Active Substance: ARIPIPRAZOLE
     Dosage: 600 MG, QM [2X300MG EVERY 30DAYS]
     Route: 030
     Dates: start: 20220122
  3. ARIPIPRAZOLE [Suspect]
     Active Substance: ARIPIPRAZOLE
     Dosage: 400 MG, QM
     Route: 030
  4. ARIPIPRAZOLE [Suspect]
     Active Substance: ARIPIPRAZOLE
     Dosage: 800 MG, Q MONTHLY
     Route: 030
  5. ARIPIPRAZOLE [Suspect]
     Active Substance: ARIPIPRAZOLE
     Route: 030
     Dates: start: 20211231
  6. ARIPIPRAZOLE [Suspect]
     Active Substance: ARIPIPRAZOLE
     Dosage: 600 MG, QM
     Route: 030
  7. BENZTROPINE MESYLATE [Concomitant]
     Active Substance: BENZTROPINE MESYLATE
     Indication: Product used for unknown indication
     Route: 065
  8. PROPRANOLOL [Concomitant]
     Active Substance: PROPRANOLOL HYDROCHLORIDE
     Indication: Product used for unknown indication
     Route: 065

REACTIONS (10)
  - Hallucination, auditory [Not Recovered/Not Resolved]
  - Fear [Unknown]
  - Feeling abnormal [Not Recovered/Not Resolved]
  - Nightmare [Not Recovered/Not Resolved]
  - Aggression [Unknown]
  - Depression [Unknown]
  - Anxiety [Unknown]
  - Agitation [Unknown]
  - Weight increased [Unknown]
  - Overdose [Unknown]

NARRATIVE: CASE EVENT DATE: 20211231
